FAERS Safety Report 7229182-3 (Version None)
Quarter: 2011Q1

REPORT INFORMATION
  Report Type: 
  Country: None (occurrence: None)
  Receive Date: 20110117
  Receipt Date: 20110110
  Transmission Date: 20110831
  Serious: Yes (Hospitalization, Other)
  Sender: FDA-Public Use
  Company Number: US-JNJFOC-20110102688

PATIENT
  Sex: Female
  Weight: 45.36 kg

DRUGS (4)
  1. FENTANYL-100 [Suspect]
     Indication: RHEUMATOID ARTHRITIS
     Dosage: NDC 0781-7244-55
     Route: 062
  2. FENTANYL-100 [Suspect]
     Indication: BACK PAIN
     Route: 062
  3. FENTANYL-100 [Suspect]
     Indication: RHEUMATOID ARTHRITIS
     Route: 062
  4. FENTANYL-100 [Suspect]
     Indication: BACK PAIN
     Dosage: NDC 0781-7244-55
     Route: 062

REACTIONS (15)
  - SPINAL CORD INFECTION [None]
  - SEPSIS [None]
  - NAUSEA [None]
  - URINARY INCONTINENCE [None]
  - RENAL NEOPLASM [None]
  - BEDRIDDEN [None]
  - ANXIETY [None]
  - OPERATIVE HAEMORRHAGE [None]
  - FEELING COLD [None]
  - APPETITE DISORDER [None]
  - BLADDER NEOPLASM [None]
  - CONSTIPATION [None]
  - WEIGHT DECREASED [None]
  - PRODUCT QUALITY ISSUE [None]
  - DEVICE RELATED INFECTION [None]
